FAERS Safety Report 4609710-4 (Version None)
Quarter: 2005Q1

REPORT INFORMATION
  Report Type: 
  Country: None (occurrence: None)
  Receive Date: 20050314
  Receipt Date: 20050303
  Transmission Date: 20050727
  Serious: Yes (Other)
  Sender: FDA-Public Use
  Company Number: 2005-03-0185

PATIENT
  Age: 41 Year
  Sex: Male
  Weight: 87 kg

DRUGS (1)
  1. PEG-INTERFERON INJECTABLE [Suspect]
     Dates: start: 20000101, end: 20000101

REACTIONS (1)
  - APPENDICITIS [None]
